FAERS Safety Report 26182619 (Version 1)
Quarter: 2025Q4

REPORT INFORMATION
  Report Type: Spontaneous
  Country: US (occurrence: US)
  Receive Date: 20251221
  Receipt Date: 20251221
  Transmission Date: 20260117
  Serious: No
  Sender: ACCORD
  Company Number: US-Accord-507064

PATIENT
  Age: 87 Year
  Sex: Female
  Weight: 74 kg

DRUGS (2)
  1. UDENYCA [Suspect]
     Active Substance: PEGFILGRASTIM-CBQV
     Indication: Prophylaxis
     Dosage: STRENGTH: 6MG/0.6ML
     Dates: start: 20250925
  2. BENDAMUSTINE [Concomitant]
     Active Substance: BENDAMUSTINE

REACTIONS (6)
  - Exposure via skin contact [Unknown]
  - Exposure via skin contact [Unknown]
  - Device malfunction [Unknown]
  - Device malfunction [Unknown]
  - Device leakage [Unknown]
  - Device leakage [Unknown]

NARRATIVE: CASE EVENT DATE: 20250925
